FAERS Safety Report 12689077 (Version 1)
Quarter: 2016Q3

REPORT INFORMATION
  Report Type: Spontaneous
  Country: US (occurrence: US)
  Receive Date: 20160826
  Receipt Date: 20160826
  Transmission Date: 20161109
  Serious: No
  Sender: FDA-Public Use
  Company Number: US-TEVA-682034ACC

PATIENT
  Age: 50 Year
  Sex: Female
  Weight: 64.92 kg

DRUGS (4)
  1. PLAN B ONE-STEP [Suspect]
     Active Substance: LEVONORGESTREL
     Indication: POST COITAL CONTRACEPTION
  2. VITAMIN B COMPLEX [Concomitant]
     Active Substance: CYANOCOBALAMIN\DEXPANTHENOL\NIACINAMIDE\PYRIDOXINE HYDROCHLORIDE\RIBOFLAVIN 5^-PHOSPHATE SODIUM\THIAMINE HYDROCHLORIDE\VITAMIN B COMPLEX
  3. TAGAMET [Concomitant]
     Active Substance: CIMETIDINE
     Indication: GASTRIC PH
  4. TOPAMAX [Concomitant]
     Active Substance: TOPIRAMATE
     Indication: ANTIOXIDANT THERAPY

REACTIONS (7)
  - Vaginal haemorrhage [Recovered/Resolved]
  - Back pain [Unknown]
  - Diarrhoea [Unknown]
  - Dizziness [Unknown]
  - Dysmenorrhoea [Unknown]
  - Vaginal haemorrhage [Recovered/Resolved]
  - Menstruation irregular [Not Recovered/Not Resolved]

NARRATIVE: CASE EVENT DATE: 20160720
